FAERS Safety Report 6039503-5 (Version None)
Quarter: 2009Q1

REPORT INFORMATION
  Report Type: 
  Country: None (occurrence: None)
  Receive Date: 20090114
  Receipt Date: 20090105
  Transmission Date: 20090719
  Serious: Yes (Other)
  Sender: FDA-Public Use
  Company Number: CIO09000147

PATIENT
  Age: 2 Year
  Sex: Female
  Weight: 13.6 kg

DRUGS (1)
  1. ORAL-B STAGES ANTICAVITY TOOTHPASTE, PINK BUBBLEGUM FLAVOR(SODIUM FLUO [Suspect]
     Dosage: 1 APPLIC, 1 /DAY FOR 1 DAY, INTRAORAL
     Route: 048
     Dates: start: 20090104, end: 20090104

REACTIONS (4)
  - HYPOVENTILATION [None]
  - LOSS OF CONSCIOUSNESS [None]
  - SKIN DISCOLOURATION [None]
  - TREMOR [None]
